FAERS Safety Report 15480638 (Version 3)
Quarter: 2019Q1

REPORT INFORMATION
  Report Type: Spontaneous
  Country: US (occurrence: US)
  Receive Date: 20181010
  Receipt Date: 20190307
  Transmission Date: 20190417
  Serious: No
  Sender: FDA-Public Use
  Company Number: US-TEVA-2018-US-961092

PATIENT
  Sex: Female

DRUGS (6)
  1. ADVAIR HFA [Concomitant]
     Active Substance: FLUTICASONE PROPIONATE\SALMETEROL XINAFOATE
  2. NASONEX [Concomitant]
     Active Substance: MOMETASONE FUROATE
  3. DICLOFENAC W/MISOPROSTOL ACTAVIS [Suspect]
     Active Substance: DICLOFENAC SODIUM\MISOPROSTOL
     Indication: BACK PAIN
  4. DICLOFENAC W/MISOPROSTOL ACTAVIS [Suspect]
     Active Substance: DICLOFENAC SODIUM\MISOPROSTOL
     Indication: ARTHRITIS
     Dosage: DICLOFENAC SODIUM / MISOPROSTOL,75 MG / 0.2 MG
     Route: 065
     Dates: start: 201808
  5. PRAVASTATIN. [Concomitant]
     Active Substance: PRAVASTATIN
  6. ARMOUR THYROID [Concomitant]
     Active Substance: THYROID, PORCINE

REACTIONS (2)
  - Drug ineffective [Unknown]
  - Gastrooesophageal reflux disease [Not Recovered/Not Resolved]
